FAERS Safety Report 10479515 (Version 1)
Quarter: 2014Q3

REPORT INFORMATION
  Report Type: Report from Study
  Country: US (occurrence: US)
  Receive Date: 20140926
  Receipt Date: 20140926
  Transmission Date: 20150326
  Serious: Yes (Other)
  Sender: FDA-Public Use
  Company Number: US-ALEXION PHARMACEUTICALS INC-A201002369

PATIENT
  Sex: Female

DRUGS (1)
  1. SOLIRIS [Suspect]
     Active Substance: ECULIZUMAB
     Indication: PAROXYSMAL NOCTURNAL HAEMOGLOBINURIA

REACTIONS (5)
  - Headache [Unknown]
  - Packed red blood cell transfusion [Unknown]
  - Fatigue [Unknown]
  - Abdominal pain [Unknown]
  - Haemoglobin abnormal [Unknown]
